FAERS Safety Report 11683834 (Version 1)
Quarter: 2015Q4

REPORT INFORMATION
  Report Type: Spontaneous
  Country: US (occurrence: US)
  Receive Date: 20151029
  Receipt Date: 20151029
  Transmission Date: 20160304
  Serious: No
  Sender: FDA-Public Use
  Company Number: US-ROCHE-1500700

PATIENT
  Sex: Female

DRUGS (10)
  1. POTASSIUM CITRATE. [Concomitant]
     Active Substance: POTASSIUM CITRATE
     Route: 065
  2. VENTOLIN [Concomitant]
     Active Substance: ALBUTEROL SULFATE
  3. FLUTICASONE [Concomitant]
     Active Substance: FLUTICASONE\FLUTICASONE PROPIONATE
     Dosage: 2 SQUIRTS DAILY PER NOSTRIL
     Route: 065
  4. ADVAIR DISKUS [Concomitant]
     Active Substance: FLUTICASONE PROPIONATE\SALMETEROL XINAFOATE
     Dosage: 250/50, ONE PUFF ONCE DAILY
     Route: 065
  5. HYPERTONIC SALINE [Concomitant]
     Dosage: 7%
     Route: 065
  6. PULMOZYME [Suspect]
     Active Substance: DORNASE ALFA
     Indication: CYSTIC FIBROSIS
     Dosage: 1MG/ML AMPULE IN THE MORNING
     Route: 065
     Dates: start: 20141122
  7. CIPRO [Concomitant]
     Active Substance: CIPROFLOXACIN HYDROCHLORIDE
     Route: 048
  8. CREON [Concomitant]
     Active Substance: PANCRELIPASE AMYLASE\PANCRELIPASE LIPASE\PANCRELIPASE PROTEASE
     Dosage: 2400
     Route: 065
  9. GLUMETZA [Concomitant]
     Active Substance: METFORMIN HYDROCHLORIDE
     Route: 065
  10. MEROPENEM. [Concomitant]
     Active Substance: MEROPENEM
     Dosage: 1GRAM/NS 300ML INFUSED OVER 3 HOURS IN PICC LINE
     Route: 065

REACTIONS (5)
  - Therapeutic response decreased [Not Recovered/Not Resolved]
  - Asthenia [Not Recovered/Not Resolved]
  - Confusional state [Not Recovered/Not Resolved]
  - Dysgeusia [Recovering/Resolving]
  - Increased upper airway secretion [Unknown]

NARRATIVE: CASE EVENT DATE: 20141123
